FAERS Safety Report 10174193 (Version 1)
Quarter: 2014Q2

REPORT INFORMATION
  Report Type: Spontaneous
  Country: AU (occurrence: AU)
  Receive Date: 20140515
  Receipt Date: 20140515
  Transmission Date: 20141212
  Serious: Yes (Death)
  Sender: FDA-Public Use
  Company Number: AU-BAYER-2014-070645

PATIENT
  Sex: Male

DRUGS (4)
  1. ACETYLSALICYLIC ACID (} 100 MG) [Suspect]
     Indication: ANTIPHOSPHOLIPID SYNDROME
     Route: 064
  2. ENOXAPARIN [Concomitant]
     Indication: ANTIPHOSPHOLIPID SYNDROME
     Route: 064
  3. HYDROXYCHLOROQUINE [Concomitant]
     Indication: SYSTEMIC LUPUS ERYTHEMATOSUS
     Route: 064
  4. PREDNISOLONE [Concomitant]
     Route: 064

REACTIONS (1)
  - Foetal growth restriction [Fatal]
